FAERS Safety Report 11885135 (Version 1)
Quarter: 2016Q1

REPORT INFORMATION
  Report Type: Spontaneous
  Country: US (occurrence: US)
  Receive Date: 20160104
  Receipt Date: 20160104
  Transmission Date: 20160526
  Serious: No
  Sender: FDA-Public Use
  Company Number: US-ASTRAZENECA-2015SF27885

PATIENT
  Age: 16178 Day
  Sex: Female
  Weight: 122.5 kg

DRUGS (7)
  1. FARXIGA [Suspect]
     Active Substance: DAPAGLIFLOZIN PROPANEDIOL
     Route: 048
  2. SYNTHROID [Concomitant]
     Active Substance: LEVOTHYROXINE SODIUM
  3. BYDUREON [Suspect]
     Active Substance: EXENATIDE
     Indication: TYPE 2 DIABETES MELLITUS
     Route: 058
     Dates: start: 20151215
  4. AMARIL [Concomitant]
     Dosage: 8 MG
  5. LEVEMIR [Concomitant]
     Active Substance: INSULIN DETEMIR
  6. BYETTA [Suspect]
     Active Substance: EXENATIDE
     Dosage: UNKNOWN DOSE
     Route: 065
  7. NOVOLOG [Concomitant]
     Active Substance: INSULIN ASPART

REACTIONS (3)
  - Nausea [Unknown]
  - Intentional product misuse [Unknown]
  - Vomiting [Unknown]

NARRATIVE: CASE EVENT DATE: 20151215
